FAERS Safety Report 19055711 (Version 2)
Quarter: 2021Q3

REPORT INFORMATION
  Report Type: Spontaneous
  Country: US (occurrence: US)
  Receive Date: 20210324
  Receipt Date: 20210702
  Transmission Date: 20211014
  Serious: Yes (Other)
  Sender: FDA-Public Use
  Company Number: US-BRISTOL-MYERS SQUIBB COMPANY-BMS-2021-026486

PATIENT
  Age: 68 Year
  Sex: Male

DRUGS (2)
  1. OPDIVO [Suspect]
     Active Substance: NIVOLUMAB
     Indication: LUNG CARCINOMA CELL TYPE UNSPECIFIED STAGE III
     Dosage: UNK UNK, Q2WK
     Route: 042
     Dates: start: 201609
  2. OPDIVO [Suspect]
     Active Substance: NIVOLUMAB
     Dosage: UNK UNK, QMO
     Route: 042

REACTIONS (1)
  - Type 2 diabetes mellitus [Unknown]
